FAERS Safety Report 20508879 (Version 1)
Quarter: 2022Q1

REPORT INFORMATION
  Report Type: Spontaneous
  Country: CN (occurrence: CN)
  Receive Date: 20220223
  Receipt Date: 20220223
  Transmission Date: 20220424
  Serious: Yes (Other)
  Sender: FDA-Public Use
  Company Number: CN-PFIZER INC-202200257038

PATIENT
  Age: 80 Year
  Sex: Male
  Weight: 55 kg

DRUGS (2)
  1. ZYVOX [Interacting]
     Active Substance: LINEZOLID
     Indication: Septic shock
     Dosage: 600 MG, 2X/DAY
     Dates: start: 20220128, end: 20220131
  2. BENSERAZIDE HYDROCHLORIDE\LEVODOPA [Interacting]
     Active Substance: BENSERAZIDE HYDROCHLORIDE\LEVODOPA
     Indication: Shock
     Dosage: 0.125 G, 4X/DAY
     Dates: start: 20220117, end: 20220211

REACTIONS (6)
  - Serotonin syndrome [Unknown]
  - Hyperpyrexia [Unknown]
  - Drug interaction [Unknown]
  - Pyrexia [Recovering/Resolving]
  - Tremor [Unknown]
  - Off label use [Unknown]

NARRATIVE: CASE EVENT DATE: 20220130
